FAERS Safety Report 22588495 (Version 7)
Quarter: 2024Q1

REPORT INFORMATION
  Report Type: Report from Study
  Country: CA (occurrence: CA)
  Receive Date: 20230612
  Receipt Date: 20240307
  Transmission Date: 20240409
  Serious: Yes (Other)
  Sender: FDA-Public Use
  Company Number: CA-002147023-NVSC2022CA254651

PATIENT
  Sex: Male

DRUGS (10)
  1. COSENTYX [Suspect]
     Active Substance: SECUKINUMAB
     Indication: Product used for unknown indication
     Dosage: 300 MG
     Route: 058
     Dates: start: 20200612, end: 20200710
  2. COSENTYX [Suspect]
     Active Substance: SECUKINUMAB
     Dosage: 300 MG
     Route: 058
     Dates: start: 20200810, end: 20230518
  3. CLOBETASOL [Concomitant]
     Active Substance: CLOBETASOL
     Indication: Psoriasis
     Dosage: UNK
     Route: 065
     Dates: start: 20210309
  4. CLOBETASOL [Concomitant]
     Active Substance: CLOBETASOL
     Dosage: 1 DOSAGE FORM, QD (1 APPLICATION PRN)
     Route: 065
  5. MAXIDEX [Concomitant]
     Active Substance: DEXAMETHASONE
     Indication: Psoriasis
     Dosage: UNK
     Route: 065
     Dates: start: 20201208
  6. MAXIDEX [Concomitant]
     Active Substance: DEXAMETHASONE
     Dosage: UNK UNK, BID
     Route: 065
     Dates: start: 202210
  7. MOMETASONE FUROATE [Concomitant]
     Active Substance: MOMETASONE FUROATE
     Indication: Psoriasis
     Dosage: UNK
     Route: 065
     Dates: start: 20230529
  8. BETAMETHASONE DIPROPIONATE\CALCIPOTRIENE MONOHYDRATE [Concomitant]
     Active Substance: BETAMETHASONE DIPROPIONATE\CALCIPOTRIENE MONOHYDRATE
     Indication: Psoriasis
     Dosage: UNK
     Route: 065
     Dates: start: 20230529
  9. PROTOPIC [Concomitant]
     Active Substance: TACROLIMUS
     Indication: Psoriasis
     Dosage: UNK
     Route: 065
     Dates: start: 20211130
  10. PROTOPIC [Concomitant]
     Active Substance: TACROLIMUS
     Dosage: 1 DOSAGE FORM, PRN
     Route: 065

REACTIONS (7)
  - Infective chondritis [Recovered/Resolved]
  - Carbuncle [Recovered/Resolved]
  - Tinea pedis [Recovered/Resolved]
  - COVID-19 [Recovered/Resolved]
  - Pyrexia [Recovered/Resolved]
  - Cough [Recovered/Resolved]
  - Nasal congestion [Recovered/Resolved]

NARRATIVE: CASE EVENT DATE: 20220901
